FAERS Safety Report 13692874 (Version 1)
Quarter: 2017Q2

REPORT INFORMATION
  Report Type: Spontaneous
  Country: US (occurrence: US)
  Receive Date: 20170626
  Receipt Date: 20170626
  Transmission Date: 20170830
  Serious: Yes (Life-Threatening)
  Sender: FDA-Public Use
  Company Number: None

PATIENT
  Age: 68 Year
  Sex: Male

DRUGS (2)
  1. DEXMEDETOMIDINE. [Suspect]
     Active Substance: DEXMEDETOMIDINE
     Indication: SURGERY
     Dates: start: 20170213, end: 20170215
  2. DEXMEDETOMIDINE. [Suspect]
     Active Substance: DEXMEDETOMIDINE
     Indication: ANXIETY
     Dates: start: 20170213, end: 20170215

REACTIONS (12)
  - Muscle spasms [None]
  - Heart rate decreased [None]
  - Dyspnoea [None]
  - Stridor [None]
  - Anxiety [None]
  - Respiratory tract oedema [None]
  - Acute respiratory distress syndrome [None]
  - Back pain [None]
  - Wheezing [None]
  - Cardio-respiratory arrest [None]
  - Throat tightness [None]
  - Neck pain [None]

NARRATIVE: CASE EVENT DATE: 20170215
